FAERS Safety Report 16481529 (Version 1)
Quarter: 2019Q2

REPORT INFORMATION
  Report Type: Spontaneous
  Country: JP (occurrence: JP)
  Receive Date: 20190627
  Receipt Date: 20190627
  Transmission Date: 20190711
  Serious: Yes (Hospitalization)
  Sender: FDA-Public Use
  Company Number: JP-ROCHE-2343812

PATIENT
  Age: 84 Year
  Sex: Male

DRUGS (2)
  1. AVASTIN [Suspect]
     Active Substance: BEVACIZUMAB
     Indication: COLON CANCER
     Dosage: UNCERTAIN DOSAGE AND DOSE INTERVAL UNCERTAINTY
     Route: 041
  2. XELODA [Suspect]
     Active Substance: CAPECITABINE
     Indication: COLON CANCER
     Dosage: UNCERTAIN DOSAGE AND DOSE INTERVAL UNCERTAINTY
     Route: 048

REACTIONS (1)
  - Perforation [Recovered/Resolved]

NARRATIVE: CASE EVENT DATE: 20180901
